FAERS Safety Report 12542452 (Version 3)
Quarter: 2016Q4

REPORT INFORMATION
  Report Type: Spontaneous
  Country: US (occurrence: US)
  Receive Date: 20160708
  Receipt Date: 20161025
  Transmission Date: 20170207
  Serious: Yes (Other)
  Sender: FDA-Public Use
  Company Number: US-TEVA-674486USA

PATIENT
  Age: 39 Year
  Sex: Male

DRUGS (1)
  1. ZECUITY [Suspect]
     Active Substance: SUMATRIPTAN SUCCINATE
     Indication: MIGRAINE
     Route: 062
     Dates: start: 201601, end: 201601

REACTIONS (7)
  - Wrong technique in product usage process [Unknown]
  - Application site burn [Recovered/Resolved]
  - Drug ineffective [Recovered/Resolved]
  - Application site erythema [Recovered/Resolved]
  - Application site scab [Recovered/Resolved]
  - Application site paraesthesia [Recovered/Resolved]
  - Application site exfoliation [Recovered/Resolved]

NARRATIVE: CASE EVENT DATE: 201601
